FAERS Safety Report 16984211 (Version 3)
Quarter: 2024Q3

REPORT INFORMATION
  Report Type: Spontaneous
  Country: US (occurrence: None)
  Receive Date: 20191101
  Receipt Date: 20240906
  Transmission Date: 20241016
  Serious: No
  Sender: DOMPE FARMACEUTICI
  Company Number: US-FARMAPROD-201904-0601

PATIENT
  Sex: Female

DRUGS (20)
  1. OXERVATE [Suspect]
     Active Substance: CENEGERMIN-BKBJ
     Indication: Neurotrophic keratopathy
     Route: 047
     Dates: start: 20190304, end: 20190429
  2. OXERVATE [Suspect]
     Active Substance: CENEGERMIN-BKBJ
     Route: 047
     Dates: start: 20210714, end: 20210908
  3. OXERVATE [Suspect]
     Active Substance: CENEGERMIN-BKBJ
     Route: 047
     Dates: start: 20211129, end: 20220120
  4. OXERVATE [Suspect]
     Active Substance: CENEGERMIN-BKBJ
     Route: 047
     Dates: start: 20220126, end: 20220323
  5. OXERVATE [Suspect]
     Active Substance: CENEGERMIN-BKBJ
     Route: 047
     Dates: start: 20221026, end: 20221219
  6. OXERVATE [Suspect]
     Active Substance: CENEGERMIN-BKBJ
     Route: 047
     Dates: start: 20240109
  7. CYCLOBENZAPRINE [Concomitant]
     Active Substance: CYCLOBENZAPRINE
  8. ARTIFICIAL TEARS [Concomitant]
     Dosage: 0.1%-0.3%
  9. VITAMIN B12 [Concomitant]
     Active Substance: CYANOCOBALAMIN
  10. CALCIUM\CHOLECALCIFEROL [Concomitant]
     Active Substance: CALCIUM\CHOLECALCIFEROL
     Dosage: 600 MG/12.5
  11. VITAMIN D3 [Concomitant]
     Active Substance: CHOLECALCIFEROL
  12. METFORMIN HYDROCHLORIDE [Concomitant]
     Active Substance: METFORMIN HYDROCHLORIDE
  13. ROSUVASTATIN CALCIUM [Concomitant]
     Active Substance: ROSUVASTATIN CALCIUM
  14. VALSARTAN [Concomitant]
     Active Substance: VALSARTAN
  15. HYDROCHLOROTHIAZIDE\TRIAMTERENE [Concomitant]
     Active Substance: HYDROCHLOROTHIAZIDE\TRIAMTERENE
     Dosage: 37.5 MG/25 MG
  16. PREDNISOLONE [Concomitant]
     Active Substance: PREDNISOLONE
  17. GABAPENTIN [Concomitant]
     Active Substance: GABAPENTIN
  18. OZEMPIC [Concomitant]
     Active Substance: SEMAGLUTIDE
     Dosage: 2MG/0.75ML PEN INJECTOR
  19. METFORMIN [Concomitant]
     Active Substance: METFORMIN HYDROCHLORIDE
     Dosage: GASTRIC, EXTENDED RELEASE.
  20. PREDNISOLONE-BROMFENAC [Concomitant]

REACTIONS (2)
  - Vision blurred [Unknown]
  - Therapy partial responder [Unknown]
